FAERS Safety Report 18831610 (Version 1)
Quarter: 2021Q1

REPORT INFORMATION
  Report Type: Spontaneous
  Country: IT (occurrence: IT)
  Receive Date: 20210203
  Receipt Date: 20210203
  Transmission Date: 20210419
  Serious: Yes (Death, Hospitalization, Other)
  Sender: FDA-Public Use
  Company Number: IT-AMGEN-ITASP2021014633

PATIENT

DRUGS (18)
  1. PAZOPANIB [Concomitant]
     Active Substance: PAZOPANIB
     Route: 048
  2. ABIRATERONE. [Concomitant]
     Active Substance: ABIRATERONE ACETATE
     Route: 048
  3. LETROZOL [Concomitant]
     Active Substance: LETROZOLE
     Route: 048
  4. CYCLOPHOSPHAMIDE. [Concomitant]
     Active Substance: CYCLOPHOSPHAMIDE
     Route: 048
  5. CAPECITABINE. [Concomitant]
     Active Substance: CAPECITABINE
     Dosage: UNK
     Route: 048
  6. SUNITINIB [Concomitant]
     Active Substance: SUNITINIB
     Route: 048
  7. TEMOZOLOMIDE. [Concomitant]
     Active Substance: TEMOZOLOMIDE
     Route: 048
  8. BORTEZOMIB. [Concomitant]
     Active Substance: BORTEZOMIB
     Route: 058
  9. SORAFENIB [Concomitant]
     Active Substance: SORAFENIB
     Route: 048
  10. LAPATINIB [Concomitant]
     Active Substance: LAPATINIB
     Route: 048
  11. FULVESTRANT. [Concomitant]
     Active Substance: FULVESTRANT
  12. PROLIA [Suspect]
     Active Substance: DENOSUMAB
     Indication: PRODUCT USED FOR UNKNOWN INDICATION
     Dosage: UNK
     Route: 058
  13. ZOLEDRONIC ACID [Concomitant]
     Active Substance: ZOLEDRONIC ACID
     Dosage: UNK
  14. TRASTUZUMAB. [Concomitant]
     Active Substance: TRASTUZUMAB
     Route: 058
  15. VINORELBINE [Concomitant]
     Active Substance: VINORELBINE TARTRATE
     Route: 048
  16. TAMOXIFEN [Concomitant]
     Active Substance: TAMOXIFEN
     Route: 048
  17. ANASTROZOL [Concomitant]
     Active Substance: ANASTROZOLE
     Route: 048
  18. EXEMESTANE. [Concomitant]
     Active Substance: EXEMESTANE
     Route: 048

REACTIONS (7)
  - Death [Fatal]
  - Palliative care [Unknown]
  - Paracentesis [Unknown]
  - Hospitalisation [Unknown]
  - Hospice care [Unknown]
  - Transfusion [Unknown]
  - Toxicity to various agents [Unknown]
